FAERS Safety Report 9418900 (Version 1)
Quarter: 2013Q3

REPORT INFORMATION
  Report Type: Spontaneous
  Country: US (occurrence: US)
  Receive Date: 20130725
  Receipt Date: 20130725
  Transmission Date: 20140515
  Serious: Yes (Hospitalization)
  Sender: FDA-Public Use
  Company Number: US-SANOFI-AVENTIS-2013SA074138

PATIENT
  Age: 66 Year
  Sex: Male

DRUGS (5)
  1. LANTUS SOLOSTAR [Suspect]
     Dosage: DOSE:40 UNIT(S)
     Route: 051
  2. SOLOSTAR [Suspect]
  3. JANUMET [Concomitant]
  4. GLYBURIDE [Concomitant]
  5. INSULIN PEN NOS [Concomitant]

REACTIONS (3)
  - Nosocomial infection [Unknown]
  - Blood glucose abnormal [Unknown]
  - Glycosylated haemoglobin increased [Unknown]
